FAERS Safety Report 12387590 (Version 1)
Quarter: 2016Q2

REPORT INFORMATION
  Report Type: Spontaneous
  Country: SI (occurrence: SI)
  Receive Date: 20160520
  Receipt Date: 20160520
  Transmission Date: 20160815
  Serious: Yes (Hospitalization, Other)
  Sender: FDA-Public Use
  Company Number: SI-009507513-1605SVN009164

PATIENT
  Age: 40 Year
  Sex: Male

DRUGS (5)
  1. KEYTRUDA [Suspect]
     Active Substance: PEMBROLIZUMAB
     Indication: METASTATIC MALIGNANT MELANOMA
     Dosage: 150 MG, QD
     Route: 042
     Dates: start: 20160421, end: 20160421
  2. ANALGIN [Concomitant]
     Active Substance: METAMIZOLE SODIUM
     Dosage: 3X2
  3. DUROGESIC [Concomitant]
     Active Substance: FENTANYL
     Dosage: 62.5 MICROGRAM, UNK
     Route: 003
  4. KEYTRUDA [Suspect]
     Active Substance: PEMBROLIZUMAB
     Dosage: DOSE REDUCED TO 75%
     Route: 042
     Dates: start: 2016
  5. SEVREDOL [Concomitant]
     Active Substance: MORPHINE
     Dosage: 1 DF, Q4H

REACTIONS (2)
  - Hepatic enzyme increased [Unknown]
  - Blood cholesterol increased [Unknown]

NARRATIVE: CASE EVENT DATE: 20160421
